FAERS Safety Report 5375928-9 (Version None)
Quarter: 2007Q3

REPORT INFORMATION
  Report Type: 
  Country: None (occurrence: None)
  Receive Date: 20070702
  Receipt Date: 20070621
  Transmission Date: 20080115
  Serious: Yes (Other)
  Sender: FDA-Public Use
  Company Number: FR-NOVOPROD-264178

PATIENT
  Age: 77 Year
  Sex: Female
  Weight: 60 kg

DRUGS (9)
  1. LEVEMIR [Suspect]
     Indication: INSULIN-REQUIRING TYPE II DIABETES MELLITUS
     Dosage: 8 IU, UNK
     Route: 058
     Dates: start: 20070117, end: 20070420
  2. AMARYL [Concomitant]
     Indication: INSULIN-REQUIRING TYPE II DIABETES MELLITUS
     Dosage: 3 MG, UNK
     Route: 048
     Dates: start: 19980101
  3. STAGID [Concomitant]
     Indication: INSULIN-REQUIRING TYPE II DIABETES MELLITUS
     Dosage: 3 TAB, UNK
     Route: 048
     Dates: start: 19980101
  4. ATORVASTATIN CALCIUM [Concomitant]
     Indication: HYPERCHOLESTEROLAEMIA
     Dates: end: 20070423
  5. PLAVIX [Concomitant]
     Dates: start: 20061001
  6. ACEBUTOLOL [Concomitant]
     Dates: start: 20061001, end: 20070423
  7. RAMIPRIL [Concomitant]
     Dates: start: 20061001
  8. AMLODIPINE [Concomitant]
     Dates: start: 20070101, end: 20070423
  9. OGAST [Concomitant]
     Dosage: UNK, UNK
     Dates: start: 20060301

REACTIONS (1)
  - TRANSAMINASES INCREASED [None]
